FAERS Safety Report 8976656 (Version 2)
Quarter: 2012Q4

REPORT INFORMATION
  Report Type: 
  Country: JP (occurrence: JP)
  Receive Date: 20121220
  Receipt Date: 20121227
  Transmission Date: 20130627
  Serious: Yes (Hospitalization, Other)
  Sender: FDA-Public Use
  Company Number: JP-PFIZER INC-2012318123

PATIENT
  Age: 72 Year
  Sex: Female

DRUGS (9)
  1. SEIBULE [Suspect]
     Indication: DIABETES MELLITUS
     Dosage: 50 mg, 3x/day
     Route: 048
     Dates: start: 20121108, end: 20121119
  2. EQUA [Suspect]
     Indication: DIABETES MELLITUS
     Dosage: 100 mg, per day
     Route: 048
     Dates: start: 20121108, end: 20121119
  3. CRESTOR [Concomitant]
     Dosage: UNK
  4. CONIEL [Concomitant]
     Dosage: UNK
  5. PREDNISOLONE [Concomitant]
     Indication: INTERSTITIAL PNEUMONIA
     Dosage: UNK
     Dates: start: 20121108
  6. TAKEPRON [Concomitant]
     Dosage: UNK
     Dates: start: 20120927
  7. BONALON [Concomitant]
     Dosage: 35 mg, UNK
     Dates: start: 20120927
  8. BAYASPIRIN [Concomitant]
     Dosage: UNK
  9. BAKTAR [Concomitant]
     Dosage: UNK
     Dates: start: 20120927

REACTIONS (1)
  - Agranulocytosis [Recovered/Resolved]
